FAERS Safety Report 6852023-0 (Version None)
Quarter: 2010Q3

REPORT INFORMATION
  Report Type: 
  Country: None (occurrence: None)
  Receive Date: 20100717
  Receipt Date: 20071102
  Transmission Date: 20110219
  Serious: No
  Sender: FDA-Public Use
  Company Number: US-PFIZER INC-2007094169

PATIENT
  Sex: Female
  Weight: 65.8 kg

DRUGS (13)
  1. CHANTIX [Suspect]
     Indication: SMOKING CESSATION THERAPY
     Dates: start: 20071022
  2. AVAPRO [Concomitant]
     Indication: HYPERTENSION
  3. MONTELUKAST SODIUM [Concomitant]
  4. FEXOFENADINE [Concomitant]
     Indication: HYPERSENSITIVITY
  5. LORAZEPAM [Concomitant]
     Indication: ANXIETY
  6. NASONEX [Concomitant]
  7. AZITHROMYCIN [Concomitant]
     Indication: BACTERIAL INFECTION
  8. AZITHROMYCIN [Concomitant]
     Indication: COUGH
  9. PREDNISONE [Concomitant]
     Indication: BACTERIAL INFECTION
  10. PREDNISONE [Concomitant]
     Indication: COUGH
  11. HERBALIFE PRODUCTS [Concomitant]
  12. PROCATEROL HCL [Concomitant]
  13. FLOVENT [Concomitant]

REACTIONS (1)
  - NAUSEA [None]
